FAERS Safety Report 21188503 (Version 1)
Quarter: 2022Q3

REPORT INFORMATION
  Report Type: Spontaneous
  Country: US (occurrence: US)
  Receive Date: 20220809
  Receipt Date: 20220809
  Transmission Date: 20221027
  Serious: No
  Sender: FDA-Public Use
  Company Number: US-IGSA-BIG0015004

PATIENT
  Age: 72 Year
  Sex: Female

DRUGS (18)
  1. GAMUNEX-C [Suspect]
     Active Substance: HUMAN IMMUNOGLOBULIN G
     Indication: Hypogammaglobulinaemia
     Dosage: 12 GRAM, Q.WK.
     Route: 058
     Dates: start: 20210616, end: 20210616
  2. GAMUNEX-C [Suspect]
     Active Substance: HUMAN IMMUNOGLOBULIN G
     Indication: Off label use
  3. AMLODIPINE BESYLATE [Concomitant]
     Active Substance: AMLODIPINE BESYLATE
  4. AMOXICILLIN [Concomitant]
     Active Substance: AMOXICILLIN
  5. ARIMIDEX [Concomitant]
     Active Substance: ANASTROZOLE
  6. BREO ELLIPTA [Concomitant]
     Active Substance: FLUTICASONE FUROATE\VILANTEROL TRIFENATATE
  7. CALCIUM D [CALCIUM CARBONATE;CALCIUM CITRATE;COLECALCIFEROL] [Concomitant]
  8. CRANBERRY CONCENTRATE [ASCORBIC ACID;VACCINIUM MACROCARPON FRUIT] [Concomitant]
  9. FLONASE ALLERGY RELIEF [Concomitant]
     Active Substance: FLUTICASONE PROPIONATE
  10. LACTOBACILLUS ACIDOPHILUS [Concomitant]
     Active Substance: LACTOBACILLUS ACIDOPHILUS
  11. LATANOPROST [Concomitant]
     Active Substance: LATANOPROST
  12. LEVOTHYROXINE SODIUM [Concomitant]
     Active Substance: LEVOTHYROXINE SODIUM
  13. LOVASTATIN [Concomitant]
     Active Substance: LOVASTATIN
  14. METOPROLOL SUCCINATE [Concomitant]
     Active Substance: METOPROLOL SUCCINATE
  15. VITAMINS [Concomitant]
     Active Substance: VITAMINS
  16. OMEPRAZOLE [Concomitant]
     Active Substance: OMEPRAZOLE
  17. TIMOLOL MALEATE [Concomitant]
     Active Substance: TIMOLOL MALEATE
  18. ZYRTEC [Concomitant]
     Active Substance: CETIRIZINE HYDROCHLORIDE

REACTIONS (2)
  - Nausea [Recovered/Resolved]
  - Headache [Recovered/Resolved]

NARRATIVE: CASE EVENT DATE: 20210616
